FAERS Safety Report 8335157-3 (Version None)
Quarter: 2012Q2

REPORT INFORMATION
  Report Type: 
  Country: None (occurrence: None)
  Receive Date: 20120503
  Receipt Date: 20120427
  Transmission Date: 20120825
  Serious: Yes (Other)
  Sender: FDA-Public Use
  Company Number: CA-ABBOTT-12P-028-0929933-00

PATIENT
  Age: 31 Year
  Sex: Female

DRUGS (1)
  1. PROMETRIUM [Suspect]

REACTIONS (2)
  - OFF LABEL USE [None]
  - BLINDNESS TRANSIENT [None]
